FAERS Safety Report 13505181 (Version 2)
Quarter: 2017Q2

REPORT INFORMATION
  Report Type: Spontaneous
  Country: GB (occurrence: GB)
  Receive Date: 20170502
  Receipt Date: 20170512
  Transmission Date: 20170830
  Serious: Yes (Life-Threatening, Hospitalization, Other)
  Sender: FDA-Public Use
  Company Number: GB-ALLERGAN-1716603US

PATIENT
  Age: 20 Year
  Sex: Female

DRUGS (2)
  1. VITAMIN K [Suspect]
     Active Substance: PHYTONADIONE
     Indication: CHOLESTASIS OF PREGNANCY
     Route: 065
  2. URSODEOXYCHOLIC ACID UNK [Suspect]
     Active Substance: URSODIOL
     Indication: CHOLESTASIS OF PREGNANCY
     Route: 065

REACTIONS (5)
  - Pregnancy [Unknown]
  - Drug ineffective for unapproved indication [Unknown]
  - Premature labour [Unknown]
  - Off label use [Unknown]
  - Mental disorder [Unknown]
